FAERS Safety Report 21983138 (Version 2)
Quarter: 2023Q1

REPORT INFORMATION
  Report Type: Spontaneous
  Country: US (occurrence: US)
  Receive Date: 20230213
  Receipt Date: 20230308
  Transmission Date: 20230418
  Serious: No
  Sender: FDA-Public Use
  Company Number: US-BRISTOL-MYERS SQUIBB COMPANY-2023-020375

PATIENT
  Age: 63 Year
  Sex: Male

DRUGS (1)
  1. THALOMID [Suspect]
     Active Substance: THALIDOMIDE
     Indication: Neurodermatitis
     Dosage: EVERY NIGHT FOR 28 DAYS
     Route: 048
     Dates: start: 20221103

REACTIONS (3)
  - Fatigue [Recovered/Resolved]
  - Product dose omission in error [Unknown]
  - Off label use [Unknown]
